FAERS Safety Report 6757701-X (Version None)
Quarter: 2010Q2

REPORT INFORMATION
  Report Type: 
  Country: None (occurrence: None)
  Receive Date: 20100607
  Receipt Date: 20100526
  Transmission Date: 20101027
  Serious: Yes (Other)
  Sender: FDA-Public Use
  Company Number: US-NOVOPROD-309182

PATIENT
  Age: 55 Year
  Sex: Male
  Weight: 139.23 kg

DRUGS (3)
  1. VICTOZA [Suspect]
     Indication: IMPAIRED FASTING GLUCOSE
     Dosage: 0.6 MG, QD
     Route: 058
     Dates: start: 20100401, end: 20100401
  2. VICTOZA [Suspect]
     Indication: WEIGHT DECREASED
     Dosage: 1.2 MG, QD
     Route: 058
     Dates: start: 20100401, end: 20100401
  3. VICTOZA [Suspect]
     Dosage: 1.8 MG, QD
     Route: 058
     Dates: start: 20100401, end: 20100520

REACTIONS (2)
  - ILEUS [None]
  - WEIGHT DECREASED [None]
